FAERS Safety Report 7288914-9 (Version None)
Quarter: 2011Q1

REPORT INFORMATION
  Report Type: 
  Country: None (occurrence: None)
  Receive Date: 20110211
  Receipt Date: 20110204
  Transmission Date: 20110831
  Serious: Yes (Hospitalization, Disabling, Other)
  Sender: FDA-Public Use
  Company Number: US-ABBOTT-10P-163-0684802-00

PATIENT
  Sex: Male
  Weight: 79.904 kg

DRUGS (8)
  1. HUMIRA [Suspect]
     Dates: end: 20100413
  2. CHANTIX [Concomitant]
     Indication: PRODUCT USED FOR UNKNOWN INDICATION
  3. PHOTOTHERAPY UVB [Concomitant]
     Indication: PRODUCT USED FOR UNKNOWN INDICATION
  4. HUMIRA [Suspect]
     Indication: PSORIASIS
     Dosage: 80 MG ONCE
     Dates: start: 20100115, end: 20100115
  5. LASER [Concomitant]
     Indication: PRODUCT USED FOR UNKNOWN INDICATION
  6. KEPPRA [Concomitant]
     Indication: CONVULSION
  7. DIOVAN [Concomitant]
     Indication: HYPERTENSION
  8. STEROIDS [Concomitant]
     Indication: PRODUCT USED FOR UNKNOWN INDICATION
     Route: 061

REACTIONS (12)
  - JC VIRUS INFECTION [None]
  - CONVULSION [None]
  - DEPRESSED LEVEL OF CONSCIOUSNESS [None]
  - DISORIENTATION [None]
  - FATIGUE [None]
  - APPENDICITIS [None]
  - OSTEOMYELITIS [None]
  - COGNITIVE DISORDER [None]
  - PROGRESSIVE MULTIFOCAL LEUKOENCEPHALOPATHY [None]
  - UNRESPONSIVE TO STIMULI [None]
  - IMMUNE RECONSTITUTION SYNDROME [None]
  - HEMIPARESIS [None]
